FAERS Safety Report 13143264 (Version 16)
Quarter: 2025Q3

REPORT INFORMATION
  Report Type: Spontaneous
  Country: EU (occurrence: EU)
  Receive Date: 20170124
  Receipt Date: 20250910
  Transmission Date: 20251021
  Serious: Yes (Life-Threatening, Hospitalization, Other)
  Sender: GLAXOSMITHKLINE
  Company Number: EU-AFSSAPS-BX20161076

PATIENT
  Sex: Female
  Weight: 96 kg

DRUGS (9)
  1. LAMICTAL [Suspect]
     Active Substance: LAMOTRIGINE
     Indication: Depression
     Dosage: 25 MG, QD, AT BEDTIME
  2. LAMICTAL [Suspect]
     Active Substance: LAMOTRIGINE
     Dosage: 50 MG, QD
  3. LAMICTAL [Suspect]
     Active Substance: LAMOTRIGINE
     Dosage: 100 MG, QD
  4. LAMOTRIGINE [Suspect]
     Active Substance: LAMOTRIGINE
     Indication: Product used for unknown indication
  5. LEVOTHYROXINE [Suspect]
     Active Substance: LEVOTHYROXINE
     Indication: Product used for unknown indication
  6. ALPRAZOLAM [Concomitant]
     Active Substance: ALPRAZOLAM
     Indication: Product used for unknown indication
  7. LORMETAZEPAM [Concomitant]
     Active Substance: LORMETAZEPAM
     Indication: Product used for unknown indication
  8. XANAX [Concomitant]
     Active Substance: ALPRAZOLAM
     Indication: Product used for unknown indication
     Dosage: 0.5 MG, QD, 1 TO 4
  9. LORMETAZEPAM [Concomitant]
     Active Substance: LORMETAZEPAM
     Indication: Product used for unknown indication
     Dosage: UNK UNK, QD

REACTIONS (47)
  - Haemorrhage [Unknown]
  - Herpes virus infection [Unknown]
  - Erythema multiforme [Recovered/Resolved with Sequelae]
  - Toxic skin eruption [Recovered/Resolved with Sequelae]
  - Stevens-Johnson syndrome [Recovered/Resolved with Sequelae]
  - Toxic epidermal necrolysis [Unknown]
  - Entropion [Recovered/Resolved]
  - Stomatitis [Unknown]
  - Sicca syndrome [Unknown]
  - Suicide attempt [Unknown]
  - Punctate keratitis [Unknown]
  - Internal haemorrhage [Unknown]
  - Corneal neovascularisation [Unknown]
  - Eye disorder [Not Recovered/Not Resolved]
  - Disability [Unknown]
  - Symblepharon [Unknown]
  - Oral disorder [Recovering/Resolving]
  - Fibrosis [Not Recovered/Not Resolved]
  - Mucosal disorder [Unknown]
  - Ligneous conjunctivitis [Unknown]
  - Autonomic nervous system imbalance [Unknown]
  - Ophthalmic migraine [Not Recovered/Not Resolved]
  - Food intolerance [Unknown]
  - Cheilitis [Recovering/Resolving]
  - Koebner phenomenon [Unknown]
  - Noninfective gingivitis [Unknown]
  - Gingival disorder [Unknown]
  - Throat tightness [Unknown]
  - Movement disorder [Unknown]
  - Loss of personal independence in daily activities [Unknown]
  - Decreased interest [Unknown]
  - Reaction to excipient [Unknown]
  - Pyrexia [Unknown]
  - Dysuria [Unknown]
  - Pharyngeal oedema [Unknown]
  - Visual impairment [Unknown]
  - Keratitis [Unknown]
  - Discomfort [Unknown]
  - Trichiasis [Unknown]
  - Sleep disorder [Unknown]
  - Anxiety disorder [Unknown]
  - Drug intolerance [Unknown]
  - Plantar fasciitis [Unknown]
  - Vertigo [Unknown]
  - Off label use [Unknown]
  - Drug dose titration not performed [Unknown]
  - Product prescribing error [Unknown]

NARRATIVE: CASE EVENT DATE: 20160101
